FAERS Safety Report 6820123-7 (Version None)
Quarter: 2010Q3

REPORT INFORMATION
  Report Type: 
  Country: None (occurrence: None)
  Receive Date: 20100707
  Receipt Date: 20080625
  Transmission Date: 20110219
  Serious: No
  Sender: FDA-Public Use
  Company Number: US-PFIZER INC-2008040194

PATIENT
  Sex: Female
  Weight: 64.5 kg

DRUGS (6)
  1. XANAX [Suspect]
     Indication: ANXIETY
     Route: 048
  2. XANAX [Suspect]
     Indication: PAIN
  3. METHADONE [Concomitant]
  4. ALPRAZOLAM [Concomitant]
  5. OXYMORPHONE HYDROCHLORIDE [Concomitant]
  6. CLONIDINE [Concomitant]

REACTIONS (3)
  - DRUG EFFECT DECREASED [None]
  - DRUG TOLERANCE [None]
  - WEIGHT INCREASED [None]
